FAERS Safety Report 7035614-6 (Version None)
Quarter: 2010Q4

REPORT INFORMATION
  Report Type: 
  Country: None (occurrence: None)
  Receive Date: 20101008
  Receipt Date: 20100927
  Transmission Date: 20110411
  Serious: Yes (Other)
  Sender: FDA-Public Use
  Company Number: US-PFIZER INC-2010123247

PATIENT
  Sex: Female
  Weight: 63.492 kg

DRUGS (4)
  1. NEURONTIN [Suspect]
     Indication: NERVE INJURY
     Dosage: 400 MG, 3X/DAY
     Route: 048
     Dates: start: 20060601
  2. TRAMADOL [Concomitant]
     Indication: MYALGIA
     Dosage: 50 MG, 4X/DAY AS NEEDED
  3. ZANAFLEX [Concomitant]
     Indication: MYALGIA
     Dosage: 4 MG, 3X/DAY AS NEEDED
  4. BENTYL [Concomitant]
     Dosage: 10 MG, 3X/DAY

REACTIONS (3)
  - IRRITABLE BOWEL SYNDROME [None]
  - RADIAL NERVE INJURY [None]
  - SLEEP DISORDER [None]
